FAERS Safety Report 12495571 (Version 6)
Quarter: 2016Q4

REPORT INFORMATION
  Report Type: Report from Study
  Country: DE (occurrence: DE)
  Receive Date: 20160624
  Receipt Date: 20161115
  Transmission Date: 20170207
  Serious: Yes (Death, Hospitalization)
  Sender: FDA-Public Use
  Company Number: DE-CELGENEUS-DEU-2016062917

PATIENT
  Age: 73 Year
  Sex: Male
  Weight: 94 kg

DRUGS (1)
  1. AZACITIDINE INJECTABLE [Suspect]
     Active Substance: AZACITIDINE
     Indication: MYELODYSPLASTIC SYNDROME
     Dosage: 162 MILLIGRAM
     Route: 058
     Dates: start: 20160512, end: 20160520

REACTIONS (3)
  - Graft versus host disease in gastrointestinal tract [Fatal]
  - Pneumonia [Not Recovered/Not Resolved]
  - Herpes virus infection [Fatal]

NARRATIVE: CASE EVENT DATE: 201606
